FAERS Safety Report 4634294-4 (Version None)
Quarter: 2005Q2

REPORT INFORMATION
  Report Type: 
  Country: None (occurrence: None)
  Receive Date: 20050412
  Receipt Date: 20050325
  Transmission Date: 20051028
  Serious: Yes (Hospitalization)
  Sender: FDA-Public Use
  Company Number: FR-2005-004351

PATIENT
  Age: 81 Year
  Sex: Male

DRUGS (4)
  1. OSTEOCIS/TCK-21 (TECHNETIUM TC 99M OXIDRONATE) INJECTION [Suspect]
     Dosage: INTRAVENOUS
     Route: 042
     Dates: start: 20041231, end: 20041231
  2. OMEPRAZOLE [Concomitant]
  3. AMLODIPINE BESYLATE [Concomitant]
  4. LIPANTYL ^FOURNIER^ (FENOFIBRATE) CAPSULE [Concomitant]

REACTIONS (4)
  - INJECTION SITE DERMATITIS [None]
  - INJECTION SITE ERYTHEMA [None]
  - PRURIGO [None]
  - RASH MACULAR [None]
